FAERS Safety Report 7575645-0 (Version None)
Quarter: 2011Q2

REPORT INFORMATION
  Report Type: 
  Country: None (occurrence: None)
  Receive Date: 20110628
  Receipt Date: 20110621
  Transmission Date: 20111010
  Serious: Yes (Hospitalization)
  Sender: FDA-Public Use
  Company Number: AU-AMGEN-AUSSP2011031441

PATIENT
  Age: 65 Year
  Sex: Female

DRUGS (4)
  1. PROLIA [Suspect]
     Indication: OSTEOPOROSIS POSTMENOPAUSAL
     Dosage: UNK
     Dates: start: 20110101
  2. CORTISONE ACETATE [Concomitant]
  3. GOLD [Concomitant]
  4. IMURAN [Concomitant]

REACTIONS (3)
  - LOCALISED INFECTION [None]
  - PARKINSON'S DISEASE [None]
  - RHEUMATOID ARTHRITIS [None]
